FAERS Safety Report 4541751-8 (Version None)
Quarter: 2004Q4

REPORT INFORMATION
  Report Type: 
  Country: None (occurrence: None)
  Receive Date: 20041227
  Receipt Date: 20041215
  Transmission Date: 20050328
  Serious: Yes (Death)
  Sender: FDA-Public Use
  Company Number: 2004114971

PATIENT

DRUGS (2)
  1. IRINOTECAN HCL [Suspect]
     Indication: RECTAL CANCER
     Dosage: 40 MG (INTERMITTENT), INTRAVENOUS
     Route: 042
  2. DOXIFLURIDINE (DOXIFLURIDINE) [Concomitant]

REACTIONS (2)
  - INTERSTITIAL LUNG DISEASE [None]
  - MARKEDLY REDUCED DIETARY INTAKE [None]
